FAERS Safety Report 17822214 (Version 3)
Quarter: 2020Q2

REPORT INFORMATION
  Report Type: Spontaneous
  Country: DE (occurrence: DE)
  Receive Date: 20200526
  Receipt Date: 20200610
  Transmission Date: 20200714
  Serious: Yes (Congenital Anomaly, Other)
  Sender: FDA-Public Use
  Company Number: DE-AMGEN-DEUSP2020081115

PATIENT
  Age: 1 Day
  Sex: Male
  Weight: 4.08 kg

DRUGS (7)
  1. METOPROLOL. [Suspect]
     Active Substance: METOPROLOL
     Indication: SINUS TACHYCARDIA
     Dosage: 23.75 MG, QD
     Route: 064
     Dates: start: 20180830, end: 20190308
  2. BISOPROLOL [Suspect]
     Active Substance: BISOPROLOL
     Indication: SINUS TACHYCARDIA
     Dosage: 10 MILLIGRAM, QD
     Route: 064
     Dates: start: 20180706, end: 20180829
  3. BETAMETHASONE. [Concomitant]
     Active Substance: BETAMETHASONE
     Indication: MATERNAL THERAPY TO ENHANCE FOETAL LUNG MATURITY
     Dosage: UNK
     Route: 064
  4. PROCORALAN [Suspect]
     Active Substance: IVABRADINE
     Indication: SINUS TACHYCARDIA
     Dosage: 7.5 MILLIGRAM, BID
     Route: 064
     Dates: start: 20180706, end: 20180829
  5. VALPROAT [Concomitant]
     Active Substance: VALPROATE SODIUM
     Indication: EPILEPSY
     Dosage: 500-0-1000 MG
     Route: 065
     Dates: start: 2018, end: 2018
  6. LEVOCETIRIZINE [Concomitant]
     Active Substance: LEVOCETIRIZINE
     Indication: SEASONAL ALLERGY
     Dosage: 5 MILLIGRAM, QD
     Route: 064
     Dates: start: 2018, end: 2018
  7. L-THYROXINE [LEVOTHYROXINE SODIUM] [Concomitant]
     Active Substance: LEVOTHYROXINE SODIUM
     Indication: HYPOTHYROIDISM
     Dosage: 50 MICROGRAM, QD
     Route: 064
     Dates: start: 20180706, end: 20190308

REACTIONS (7)
  - Congenital choroid plexus cyst [Unknown]
  - Large for dates baby [Unknown]
  - Cleft palate [Not Recovered/Not Resolved]
  - Atrial septal defect [Recovered/Resolved]
  - Foetal exposure during pregnancy [Unknown]
  - Off label use [Unknown]
  - Respiratory disorder neonatal [Recovered/Resolved]

NARRATIVE: CASE EVENT DATE: 2018
